FAERS Safety Report 17490012 (Version 1)
Quarter: 2020Q1

REPORT INFORMATION
  Report Type: Spontaneous
  Country: US (occurrence: US)
  Receive Date: 20200303
  Receipt Date: 20200303
  Transmission Date: 20200409
  Serious: No
  Sender: FDA-Public Use
  Company Number: US-AKORN PHARMACEUTICALS-2019AKN02085

PATIENT
  Age: 18 Year
  Sex: Male
  Weight: 63.49 kg

DRUGS (2)
  1. MYORISAN [Suspect]
     Active Substance: ISOTRETINOIN
     Dosage: 40 MG, 2X/DAY ^BUT DIDN^T TAKE AS MANY AS DIRECTED^
     Route: 048
     Dates: start: 201907, end: 2019
  2. MYORISAN [Suspect]
     Active Substance: ISOTRETINOIN
     Indication: ACNE
     Dosage: 40 MG, 1X/DAY
     Route: 048
     Dates: start: 20190620, end: 201907

REACTIONS (4)
  - Intentional product use issue [Recovered/Resolved]
  - Therapeutic product effect incomplete [Recovered/Resolved]
  - Lip dry [Unknown]
  - Off label use [Recovered/Resolved]

NARRATIVE: CASE EVENT DATE: 2019
